FAERS Safety Report 17100434 (Version 2)
Quarter: 2019Q4

REPORT INFORMATION
  Report Type: Spontaneous
  Country: ES (occurrence: ES)
  Receive Date: 20191202
  Receipt Date: 20191210
  Transmission Date: 20200122
  Serious: Yes (Hospitalization)
  Sender: FDA-Public Use
  Company Number: ES-MYLANLABS-2019M1115743

PATIENT
  Age: 94 Year
  Sex: Female

DRUGS (5)
  1. ENALAPRIL [Suspect]
     Active Substance: ENALAPRIL
     Indication: HYPERTENSION
     Dosage: UNK
     Route: 048
     Dates: start: 20190523, end: 20190527
  2. SULFAMETOXAZOL + TRIMETOPRIMA [Interacting]
     Active Substance: SULFAMETHOXAZOLE\TRIMETHOPRIM
     Indication: PNEUMONIA
     Dosage: 160 MILLIGRAM, QD
     Route: 048
     Dates: start: 20190529, end: 20190531
  3. FUROSEMIDA                         /00032601/ [Concomitant]
     Active Substance: FUROSEMIDE
     Indication: HYPERTENSION
     Dosage: 40 MILLIGRAM, QOD
     Route: 048
     Dates: start: 20190528, end: 20190603
  4. NAPROXENO                          /00256201/ [Interacting]
     Active Substance: NAPROXEN
     Indication: OSTEITIS
     Dosage: 50 MILLIGRAM, QD
     Route: 048
     Dates: start: 20190525, end: 20190527
  5. LEVOFLOXACINO                      /01278901/ [Interacting]
     Active Substance: LEVOFLOXACIN
     Indication: PNEUMONIA
     Dosage: 500 MILLIGRAM, BID
     Route: 042
     Dates: start: 20190523, end: 20190529

REACTIONS (2)
  - Drug interaction [Unknown]
  - Acute kidney injury [Recovered/Resolved]

NARRATIVE: CASE EVENT DATE: 20190531
